FAERS Safety Report 9107909 (Version 2)
Quarter: 2013Q2

REPORT INFORMATION
  Report Type: Spontaneous
  Country: US (occurrence: US)
  Receive Date: 20130221
  Receipt Date: 20130607
  Transmission Date: 20140414
  Serious: No
  Sender: FDA-Public Use
  Company Number: US-009507513-1302USA009271

PATIENT
  Sex: Female
  Weight: 16.78 kg

DRUGS (3)
  1. MIRALAX [Suspect]
     Indication: PRODUCT USED FOR UNKNOWN INDICATION
     Dosage: 11.33 G, ONCE
     Route: 048
     Dates: start: 20130205
  2. MIRALAX [Suspect]
     Indication: MEDICAL OBSERVATION
     Dosage: 5.67 G, QD
     Route: 048
     Dates: start: 20130403, end: 20130405
  3. CHILDRENS TYLENOL [Concomitant]
     Indication: PYREXIA
     Dosage: UNK, UNKNOWN

REACTIONS (2)
  - Drug administered to patient of inappropriate age [Unknown]
  - Off label use [Unknown]
